FAERS Safety Report 13664975 (Version 1)
Quarter: 2017Q2

REPORT INFORMATION
  Report Type: Spontaneous
  Country: US (occurrence: US)
  Receive Date: 20170619
  Receipt Date: 20170619
  Transmission Date: 20170830
  Serious: Yes (Hospitalization)
  Sender: FDA-Public Use
  Company Number: None

PATIENT
  Age: 75 Year
  Sex: Female

DRUGS (1)
  1. OCTREOTIDE 50MCG [Suspect]
     Active Substance: OCTREOTIDE
     Indication: SKIN DISORDER
     Route: 058
     Dates: start: 20160527

REACTIONS (1)
  - Hospitalisation [None]
